FAERS Safety Report 7222263-X (Version None)
Quarter: 2011Q1

REPORT INFORMATION
  Report Type: 
  Country: None (occurrence: None)
  Receive Date: 20110112
  Receipt Date: 20110105
  Transmission Date: 20110831
  Serious: Yes (Disabling, Other)
  Sender: FDA-Public Use
  Company Number: US-MERCK-0610USA12817

PATIENT
  Age: 61 Year
  Sex: Female
  Weight: 50 kg

DRUGS (5)
  1. CALCIUM (UNSPECIFIED) [Concomitant]
     Route: 065
  2. FOSAMAX [Suspect]
     Indication: OSTEOPOROSIS
     Route: 048
     Dates: start: 20000101, end: 20080101
  3. ADVIL [Concomitant]
     Route: 065
  4. BONIVA [Suspect]
     Route: 048
     Dates: start: 20050101, end: 20080101
  5. ZETIA [Concomitant]
     Route: 048

REACTIONS (8)
  - OSTEONECROSIS OF JAW [None]
  - JAW DISORDER [None]
  - ORAL INFECTION [None]
  - OSTEOMYELITIS [None]
  - JAW FRACTURE [None]
  - WEIGHT INCREASED [None]
  - BLOOD CHOLESTEROL INCREASED [None]
  - TOOTH DISORDER [None]
